FAERS Safety Report 10497358 (Version 1)
Quarter: 2014Q3

REPORT INFORMATION
  Report Type: Spontaneous
  Country: US (occurrence: None)
  Receive Date: 20140815
  Receipt Date: 20140815
  Transmission Date: 20150326
  Serious: Yes (Other)
  Sender: FDA-Public Use
  Company Number: ADR-2014-00826

PATIENT

DRUGS (2)
  1. BACLOFEN INTRATHECAL (2000 MCG/ML) [Suspect]
     Active Substance: BACLOFEN
  2. BUPIVICAINE INTRATHECAL [Suspect]
     Active Substance: BUPIVACAINE

REACTIONS (2)
  - Drug withdrawal syndrome [None]
  - Injury [None]
